FAERS Safety Report 9263331 (Version 1)
Quarter: 2013Q2

REPORT INFORMATION
  Report Type: Spontaneous
  Country: US (occurrence: US)
  Receive Date: 20130430
  Receipt Date: 20130430
  Transmission Date: 20140414
  Serious: No
  Sender: FDA-Public Use
  Company Number: US-ABBOTT-12P-163-1024055-00

PATIENT
  Age: 44 Year
  Sex: Male
  Weight: 78.09 kg

DRUGS (1)
  1. CREON [Suspect]
     Indication: PANCREATITIS
     Dosage: 3 CAPSULES PER DAY BEFORE MEALS
     Dates: start: 2012

REACTIONS (1)
  - Faeces discoloured [Not Recovered/Not Resolved]
